FAERS Safety Report 8584503-4 (Version None)
Quarter: 2012Q3

REPORT INFORMATION
  Report Type: 
  Country: None (occurrence: None)
  Receive Date: 20120810
  Receipt Date: 20120807
  Transmission Date: 20120928
  Serious: No
  Sender: FDA-Public Use
  Company Number: US-PFIZER INC-2012192651

PATIENT
  Age: 91 Year
  Sex: Female
  Weight: 68.027 kg

DRUGS (2)
  1. PREGABALIN [Suspect]
     Indication: BACK PAIN
     Dosage: UNK, 2X/DAY
     Route: 048
     Dates: start: 20120719, end: 20120728
  2. PREGABALIN [Suspect]
     Indication: BACK DISORDER

REACTIONS (4)
  - BLOOD GLUCOSE INCREASED [None]
  - SEDATION [None]
  - MALAISE [None]
  - FEELING ABNORMAL [None]
